FAERS Safety Report 6828704-1 (Version None)
Quarter: 2010Q3

REPORT INFORMATION
  Report Type: 
  Country: None (occurrence: None)
  Receive Date: 20100709
  Receipt Date: 20070216
  Transmission Date: 20110219
  Serious: No
  Sender: FDA-Public Use
  Company Number: US-PFIZER INC-2007013304

PATIENT
  Sex: Female
  Weight: 58.97 kg

DRUGS (9)
  1. CHANTIX [Suspect]
     Indication: SMOKING CESSATION THERAPY
     Dates: start: 20070216
  2. SEREVENT [Concomitant]
  3. DUONEB [Concomitant]
     Route: 050
  4. MULTI-VITAMINS [Concomitant]
  5. CALCIUM CARBONATE [Concomitant]
  6. FIBRE, DIETARY [Concomitant]
  7. FOSAMAX [Concomitant]
  8. COMBIVENT [Concomitant]
  9. ACETYLSALICYLIC ACID [Concomitant]

REACTIONS (2)
  - NERVOUSNESS [None]
  - RESTLESSNESS [None]
